FAERS Safety Report 5885444-3 (Version None)
Quarter: 2008Q3

REPORT INFORMATION
  Report Type: 
  Country: None (occurrence: None)
  Receive Date: 20080916
  Receipt Date: 20080911
  Transmission Date: 20090109
  Serious: Yes (Hospitalization)
  Sender: FDA-Public Use
  Company Number: JP-SANOFI-SYNTHELABO-A01200810829

PATIENT
  Sex: Male

DRUGS (5)
  1. FLUOROURACIL [Suspect]
     Dosage: 600 MG
     Route: 042
     Dates: start: 20080426, end: 20080426
  2. IRINOTECAN HCL [Suspect]
     Dosage: 200 MG
     Route: 041
     Dates: start: 20080426, end: 20080426
  3. ELPLAT [Suspect]
     Indication: RECTAL CANCER METASTATIC
     Dosage: 130 MG
     Route: 041
     Dates: start: 20071123, end: 20071123
  4. AVASTIN [Suspect]
     Dosage: 270 MG
     Route: 041
     Dates: start: 20080426, end: 20080426
  5. LEUCOVORIN CALCIUM [Suspect]
     Dosage: 150 MG
     Route: 041
     Dates: start: 20080426, end: 20080426

REACTIONS (3)
  - CELLULITIS [None]
  - DECUBITUS ULCER [None]
  - HAEMORRHAGE SUBCUTANEOUS [None]
